FAERS Safety Report 17107375 (Version 2)
Quarter: 2019Q4

REPORT INFORMATION
  Report Type: Spontaneous
  Country: FR (occurrence: FR)
  Receive Date: 20191203
  Receipt Date: 20191213
  Transmission Date: 20200122
  Serious: Yes (Hospitalization)
  Sender: FDA-Public Use
  Company Number: FR-MYLANLABS-2019M1116545

PATIENT
  Age: 19 Year
  Sex: Female

DRUGS (4)
  1. IBUPROFEN. [Suspect]
     Active Substance: IBUPROFEN
     Indication: PAROTITIS
  2. AUGMENTIN [Concomitant]
     Active Substance: AMOXICILLIN\CLAVULANATE POTASSIUM
     Indication: INFECTION
     Dosage: 3 DOSAGE FORM, QD
     Route: 048
     Dates: start: 20190608
  3. IBUPROFEN. [Suspect]
     Active Substance: IBUPROFEN
     Indication: TOOTHACHE
     Dosage: UNK
     Route: 048
     Dates: start: 201906, end: 20190610
  4. AUGMENTIN [Concomitant]
     Active Substance: AMOXICILLIN\CLAVULANATE POTASSIUM
     Dosage: 6 DOSAGE FORM, QD
     Route: 048
     Dates: start: 20190608

REACTIONS (2)
  - Cellulitis [Recovered/Resolved]
  - Viral parotitis [Recovered/Resolved]

NARRATIVE: CASE EVENT DATE: 20190610
